FAERS Safety Report 16759680 (Version 1)
Quarter: 2019Q3

REPORT INFORMATION
  Report Type: Spontaneous
  Country: US (occurrence: US)
  Receive Date: 20190712
  Receipt Date: 20190712
  Transmission Date: 20191005
  Serious: No
  Sender: FDA-Public Use
  Company Number: None

PATIENT
  Age: 57 Year
  Sex: Female
  Weight: 154.22 kg

DRUGS (1)
  1. STELARA [Suspect]
     Active Substance: USTEKINUMAB
     Indication: ARTHROPATHY
     Dosage: ?          OTHER FREQUENCY:8 WEEKSASDIR ;?
     Route: 058
     Dates: start: 201904

REACTIONS (3)
  - Coma [None]
  - Clostridium difficile infection [None]
  - Fall [None]
